FAERS Safety Report 15723826 (Version 2)
Quarter: 2018Q4

REPORT INFORMATION
  Report Type: Spontaneous
  Country: CH (occurrence: CH)
  Receive Date: 20181214
  Receipt Date: 20181227
  Transmission Date: 20190205
  Serious: Yes (Hospitalization)
  Sender: FDA-Public Use
  Company Number: CH-JNJFOC-20181216320

PATIENT
  Age: 80 Year
  Sex: Male
  Weight: 69 kg

DRUGS (4)
  1. MARCOUMAR [Interacting]
     Active Substance: PHENPROCOUMON
     Indication: ATRIAL FIBRILLATION
     Route: 048
     Dates: end: 20181125
  2. IMBRUVICA [Suspect]
     Active Substance: IBRUTINIB
     Indication: B-CELL LYMPHOMA
     Route: 048
     Dates: start: 2018, end: 20181125
  3. DIOVAN [Concomitant]
     Active Substance: VALSARTAN
     Route: 065
  4. TENORMIN [Concomitant]
     Active Substance: ATENOLOL
     Route: 065

REACTIONS (2)
  - Drug interaction [Recovered/Resolved]
  - Mallory-Weiss syndrome [Recovered/Resolved]

NARRATIVE: CASE EVENT DATE: 20181125
